FAERS Safety Report 6223140-3 (Version None)
Quarter: 2009Q2

REPORT INFORMATION
  Report Type: 
  Country: None (occurrence: None)
  Receive Date: 20090609
  Receipt Date: 20090527
  Transmission Date: 20091009
  Serious: Yes (Hospitalization)
  Sender: FDA-Public Use
  Company Number: GR-WYE-H09576709

PATIENT
  Age: 69 Year

DRUGS (4)
  1. TYGACIL [Suspect]
     Indication: ACINETOBACTER INFECTION
     Dosage: 100 MG LOADING DOSE FOLLOWED BY 50 MG EVERY 12 HOURS INTRAVENOUS
     Route: 042
  2. TYGACIL [Suspect]
     Indication: CITROBACTER INFECTION
     Dosage: 100 MG LOADING DOSE FOLLOWED BY 50 MG EVERY 12 HOURS INTRAVENOUS
     Route: 042
  3. TYGACIL [Suspect]
     Indication: DIABETIC FOOT INFECTION
     Dosage: 100 MG LOADING DOSE FOLLOWED BY 50 MG EVERY 12 HOURS INTRAVENOUS
     Route: 042
  4. TYGACIL [Suspect]
     Indication: STAPHYLOCOCCAL INFECTION
     Dosage: 100 MG LOADING DOSE FOLLOWED BY 50 MG EVERY 12 HOURS INTRAVENOUS
     Route: 042

REACTIONS (9)
  - CEREBROVASCULAR ACCIDENT [None]
  - DERMATITIS [None]
  - DIARRHOEA [None]
  - EOSINOPHILIA [None]
  - GENERALISED OEDEMA [None]
  - RENAL FAILURE [None]
  - SERRATIA BACTERAEMIA [None]
  - SUPERINFECTION [None]
  - TREATMENT FAILURE [None]
